FAERS Safety Report 10501978 (Version 1)
Quarter: 2014Q4

REPORT INFORMATION
  Report Type: Spontaneous
  Country: IT (occurrence: IT)
  Receive Date: 20141007
  Receipt Date: 20141007
  Transmission Date: 20150528
  Serious: Yes (Hospitalization)
  Sender: FDA-Public Use
  Company Number: PHHY2014IT130582

PATIENT
  Age: 9 Year
  Sex: Female

DRUGS (4)
  1. HALOPERIDOL. [Suspect]
     Active Substance: HALOPERIDOL
     Dosage: 1.2 MG, QD
  2. ATOMOXETINE [Suspect]
     Active Substance: ATOMOXETINE
     Dosage: 40 MG, QD
  3. ATOMOXETINE [Suspect]
     Active Substance: ATOMOXETINE
     Indication: ATTENTION DEFICIT/HYPERACTIVITY DISORDER
     Dosage: 25 MG, QD
     Dates: start: 201101
  4. HALOPERIDOL. [Suspect]
     Active Substance: HALOPERIDOL
     Dosage: 0.90 MG, QD

REACTIONS (7)
  - Obsessive thoughts [Unknown]
  - Asthenia [Unknown]
  - Suicidal ideation [Unknown]
  - Somnolence [Unknown]
  - Suicide attempt [Unknown]
  - Feeling guilty [Unknown]
  - Weight decreased [Recovering/Resolving]
